FAERS Safety Report 9296955 (Version 1)
Quarter: 2013Q2

REPORT INFORMATION
  Report Type: Spontaneous
  Country: US (occurrence: US)
  Receive Date: 20130519
  Receipt Date: 20130519
  Transmission Date: 20140414
  Serious: No
  Sender: FDA-Public Use
  Company Number: US-ALLERGAN-1301364US

PATIENT
  Age: 49 Year
  Sex: Female

DRUGS (2)
  1. LASTACAFT [Suspect]
     Indication: PRODUCT USED FOR UNKNOWN INDICATION
     Dosage: 2 GTT, QD
     Route: 047
     Dates: start: 20130108
  2. SINGULAIR                          /01362601/ [Concomitant]
     Indication: PRODUCT USED FOR UNKNOWN INDICATION

REACTIONS (6)
  - Eyelids pruritus [Recovering/Resolving]
  - Eyelid pain [Not Recovered/Not Resolved]
  - Eyelid oedema [Recovering/Resolving]
  - Eye swelling [Recovering/Resolving]
  - Instillation site pain [Recovering/Resolving]
  - Erythema of eyelid [Recovering/Resolving]
